FAERS Safety Report 20924230 (Version 1)
Quarter: 2022Q2

REPORT INFORMATION
  Report Type: Report from Study
  Country: CN (occurrence: None)
  Receive Date: 20220607
  Receipt Date: 20220607
  Transmission Date: 20220720
  Serious: Yes (Life-Threatening)
  Sender: FDA-Public Use
  Company Number: CN-ROCHE-3112458

PATIENT
  Age: 61 Year
  Sex: Male

DRUGS (25)
  1. BEVACIZUMAB [Suspect]
     Active Substance: BEVACIZUMAB
     Indication: Non-small cell lung cancer
     Route: 042
     Dates: start: 20220520
  2. PACLITAXEL [Suspect]
     Active Substance: PACLITAXEL
     Indication: Non-small cell lung cancer
     Route: 041
  3. CARBOPLATIN [Suspect]
     Active Substance: CARBOPLATIN
     Indication: Non-small cell lung cancer
     Route: 041
  4. MOSAPRIDE CITRATE [Concomitant]
     Active Substance: MOSAPRIDE CITRATE
     Indication: Constipation
     Route: 048
     Dates: start: 20220513
  5. LACTASE [Concomitant]
     Active Substance: LACTASE
     Indication: Constipation
     Route: 048
     Dates: start: 20220513
  6. ROSUVASTATIN CALCIUM [Concomitant]
     Active Substance: ROSUVASTATIN CALCIUM
     Indication: Coronary artery disease
     Route: 048
     Dates: start: 2022
  7. PANTOPRAZOLE SODIUM [Concomitant]
     Active Substance: PANTOPRAZOLE SODIUM
     Route: 042
     Dates: start: 20220523, end: 20220525
  8. POTASSIUM CHLORIDE [Concomitant]
     Active Substance: POTASSIUM CHLORIDE
     Indication: Hypokalaemia
     Dates: start: 20220522, end: 20220524
  9. METHYLPREDNISOLONE SODIUM SUCCINATE [Concomitant]
     Active Substance: METHYLPREDNISOLONE SODIUM SUCCINATE
     Indication: Pneumonia
     Route: 042
     Dates: start: 20220524, end: 20220524
  10. METHYLPREDNISOLONE SODIUM SUCCINATE [Concomitant]
     Active Substance: METHYLPREDNISOLONE SODIUM SUCCINATE
     Indication: Chronic obstructive pulmonary disease
  11. AMBROXOL HYDROCHLORIDE [Concomitant]
     Active Substance: AMBROXOL HYDROCHLORIDE
     Indication: Pneumonia
  12. AMBROXOL HYDROCHLORIDE [Concomitant]
     Active Substance: AMBROXOL HYDROCHLORIDE
     Indication: Chronic obstructive pulmonary disease
  13. BUDESONIDE [Concomitant]
     Active Substance: BUDESONIDE
     Indication: Chronic obstructive pulmonary disease
     Dates: start: 20220528
  14. MORPHINE HYDROCHLORIDE [Concomitant]
     Active Substance: MORPHINE HYDROCHLORIDE
     Indication: Chest pain
     Route: 042
     Dates: start: 20220529, end: 20220531
  15. HYDROMORPHONE HYDROCHLORIDE [Concomitant]
     Active Substance: HYDROMORPHONE HYDROCHLORIDE
     Indication: Chest pain
     Route: 042
  16. ROPIVACAINE HYDROCHLORIDE [Concomitant]
     Active Substance: ROPIVACAINE HYDROCHLORIDE
     Indication: Chest pain
     Route: 042
     Dates: start: 20220529
  17. DEXAMETHASONE SODIUM PHOSPHATE [Concomitant]
     Active Substance: DEXAMETHASONE SODIUM PHOSPHATE
     Indication: Chest pain
     Route: 042
     Dates: start: 20220529
  18. MEPERIDINE HYDROCHLORIDE [Concomitant]
     Active Substance: MEPERIDINE HYDROCHLORIDE
     Indication: Chest pain
     Route: 030
     Dates: start: 20220530, end: 20220530
  19. MEPERIDINE HYDROCHLORIDE [Concomitant]
     Active Substance: MEPERIDINE HYDROCHLORIDE
     Route: 030
     Dates: start: 20220530, end: 20220530
  20. DOXOFYLLINE [Concomitant]
     Active Substance: DOXOFYLLINE
     Indication: Pneumonia
     Route: 042
     Dates: start: 20220530, end: 20220530
  21. DOXOFYLLINE [Concomitant]
     Active Substance: DOXOFYLLINE
     Indication: Chronic obstructive pulmonary disease
  22. METHYLPREDNISOLONE SODIUM SUCCINATE [Concomitant]
     Active Substance: METHYLPREDNISOLONE SODIUM SUCCINATE
     Indication: Pneumonia
     Route: 042
     Dates: start: 20220530, end: 20220531
  23. METHYLPREDNISOLONE SODIUM SUCCINATE [Concomitant]
     Active Substance: METHYLPREDNISOLONE SODIUM SUCCINATE
     Indication: Chronic obstructive pulmonary disease
  24. FAMOTIDINE [Concomitant]
     Active Substance: FAMOTIDINE
     Dates: start: 20220530, end: 20220530
  25. NAPROXEN [Concomitant]
     Active Substance: NAPROXEN
     Indication: Chest pain
     Route: 048

REACTIONS (1)
  - Respiratory failure [Unknown]

NARRATIVE: CASE EVENT DATE: 20220531
